FAERS Safety Report 5987189-8 (Version None)
Quarter: 2008Q4

REPORT INFORMATION
  Report Type: 
  Country: None (occurrence: None)
  Receive Date: 20081209
  Receipt Date: 20081126
  Transmission Date: 20090506
  Serious: Yes (Other)
  Sender: FDA-Public Use
  Company Number: GB-ELI_LILLY_AND_COMPANY-GB200811006232

PATIENT
  Sex: Male

DRUGS (2)
  1. BYETTA [Suspect]
     Indication: DIABETES MELLITUS
     Dosage: 10 UG, DAILY (1/D)
     Route: 065
     Dates: end: 20080101
  2. BYETTA [Suspect]
     Dosage: 600 UG, UNKNOWN
     Route: 065
     Dates: start: 20081126

REACTIONS (3)
  - INTENTIONAL OVERDOSE [None]
  - MALAISE [None]
  - SUICIDE ATTEMPT [None]
